FAERS Safety Report 8978797 (Version 4)
Quarter: 2015Q3

REPORT INFORMATION
  Report Type: Spontaneous
  Country: US (occurrence: US)
  Receive Date: 20121221
  Receipt Date: 20150821
  Transmission Date: 20151125
  Serious: No
  Sender: FDA-Public Use
  Company Number: US-BIOGENIDEC-2012BI061191

PATIENT
  Sex: Female

DRUGS (2)
  1. AVONEX [Suspect]
     Active Substance: INTERFERON BETA-1A
     Indication: MULTIPLE SCLEROSIS
     Route: 030
     Dates: start: 20001201
  2. AVONEX [Suspect]
     Active Substance: INTERFERON BETA-1A
     Indication: MULTIPLE SCLEROSIS
     Route: 030
     Dates: start: 200012

REACTIONS (9)
  - Musculoskeletal disorder [Recovered/Resolved]
  - Injection site pain [Recovered/Resolved]
  - Joint hyperextension [Recovered/Resolved]
  - Balance disorder [Unknown]
  - Peroneal nerve palsy [Recovered/Resolved with Sequelae]
  - Hip deformity [Unknown]
  - Injection site haemorrhage [Recovered/Resolved]
  - Gait disturbance [Unknown]
  - Primary progressive multiple sclerosis [Recovered/Resolved]
